FAERS Safety Report 12252976 (Version 1)
Quarter: 2016Q2

REPORT INFORMATION
  Report Type: Spontaneous
  Country: US (occurrence: US)
  Receive Date: 20160411
  Receipt Date: 20160411
  Transmission Date: 20160815
  Serious: No
  Sender: FDA-Public Use
  Company Number: US-ACTAVIS-2015-25385

PATIENT
  Age: 68 Year
  Sex: Female
  Weight: 118.2 kg

DRUGS (1)
  1. MICONAZOLE NITRATE (AMALLC) [Suspect]
     Active Substance: MICONAZOLE NITRATE
     Indication: ANTIFUNGAL TREATMENT
     Dosage: 1 DF, DAILY
     Dates: start: 20151112, end: 20151117

REACTIONS (1)
  - Rash [Unknown]

NARRATIVE: CASE EVENT DATE: 20151118
